FAERS Safety Report 23632114 (Version 1)
Quarter: 2024Q1

REPORT INFORMATION
  Report Type: Spontaneous
  Country: US (occurrence: US)
  Receive Date: 20240314
  Receipt Date: 20240314
  Transmission Date: 20240410
  Serious: No
  Sender: FDA-Public Use
  Company Number: US-ABBVIE-5674406

PATIENT
  Age: 29 Year
  Sex: Female

DRUGS (3)
  1. LILETTA [Suspect]
     Active Substance: LEVONORGESTREL
     Indication: Product used for unknown indication
     Dosage: TIME INTERVAL: AS NECESSARY: FORM STRENGTH WAS 52 MILLIGRAM?STRENGTH (LEVONORGESTREL 52MG IUD)
     Route: 015
     Dates: start: 20240301
  2. NEXPLANON [Concomitant]
     Active Substance: ETONOGESTREL
     Indication: Product used for unknown indication
     Route: 065
  3. LIDOCAINE [Concomitant]
     Active Substance: LIDOCAINE
     Indication: Product used for unknown indication
     Dosage: 1% LIDOCAINE 2 ML INJECTED AT PLANNED INCISION SITE
     Route: 065

REACTIONS (1)
  - Procedural pain [Unknown]

NARRATIVE: CASE EVENT DATE: 20240301
